FAERS Safety Report 10523313 (Version 2)
Quarter: 2014Q4

REPORT INFORMATION
  Report Type: Spontaneous
  Country: JP (occurrence: JP)
  Receive Date: 20141016
  Receipt Date: 20141024
  Transmission Date: 20150528
  Serious: No
  Sender: FDA-Public Use
  Company Number: PHJP2014JP001209

PATIENT
  Age: 52 Year
  Sex: Female

DRUGS (2)
  1. LEVETIRACETAM. [Suspect]
     Active Substance: LEVETIRACETAM
     Indication: PRODUCT USED FOR UNKNOWN INDICATION
     Dosage: 2000 MG
     Route: 048
  2. TEGRETOL [Suspect]
     Active Substance: CARBAMAZEPINE
     Indication: STATUS EPILEPTICUS
     Route: 048

REACTIONS (5)
  - Insomnia [Recovering/Resolving]
  - Mania [Recovering/Resolving]
  - Anger [Recovering/Resolving]
  - Drug ineffective [Unknown]
  - Thinking abnormal [Recovering/Resolving]
